FAERS Safety Report 20762437 (Version 2)
Quarter: 2023Q1

REPORT INFORMATION
  Report Type: Spontaneous
  Country: EC (occurrence: EC)
  Receive Date: 20220428
  Receipt Date: 20230131
  Transmission Date: 20230418
  Serious: Yes (Hospitalization, Other)
  Sender: FDA-Public Use
  Company Number: EC-PFIZER INC-202200598517

PATIENT
  Age: 58 Year
  Sex: Male

DRUGS (1)
  1. INLYTA [Suspect]
     Active Substance: AXITINIB
     Dosage: UNK
     Route: 048

REACTIONS (5)
  - Femur fracture [Recovered/Resolved with Sequelae]
  - Renal disorder [Unknown]
  - Lower limb fracture [Unknown]
  - Neoplasm progression [Unknown]
  - Fall [Unknown]

NARRATIVE: CASE EVENT DATE: 20220301
